FAERS Safety Report 14718350 (Version 3)
Quarter: 2020Q2

REPORT INFORMATION
  Report Type: Report from Study
  Country: US (occurrence: US)
  Receive Date: 20180404
  Receipt Date: 20200505
  Transmission Date: 20200713
  Serious: No
  Sender: FDA-Public Use
  Company Number: US-SA-2018SA087912

PATIENT
  Age: 68 Year
  Sex: Female

DRUGS (13)
  1. NEURONTIN [Concomitant]
     Active Substance: GABAPENTIN
  2. HYDRALAZINE [Concomitant]
     Active Substance: HYDRALAZINE HYDROCHLORIDE
  3. DULOXETINE. [Concomitant]
     Active Substance: DULOXETINE
  4. DUPILUMAB [Suspect]
     Active Substance: DUPILUMAB
     Dosage: 300 MG, QOW
     Route: 058
     Dates: start: 20180314
  5. VITAMIN D3 [Concomitant]
     Active Substance: CHOLECALCIFEROL
     Dosage: UNK
  6. ESTRACE [Concomitant]
     Active Substance: ESTRADIOL
  7. CARVEDILOL. [Concomitant]
     Active Substance: CARVEDILOL
  8. ACETYLSALICYLIC ACID [Concomitant]
     Active Substance: ASPIRIN
  9. ALDACTAZIDE [Concomitant]
     Active Substance: HYDROCHLOROTHIAZIDE\SPIRONOLACTONE
  10. DOXEPIN [Concomitant]
     Active Substance: DOXEPIN
  11. VALSARTAN. [Concomitant]
     Active Substance: VALSARTAN
  12. ATORVASTATIN [Concomitant]
     Active Substance: ATORVASTATIN
  13. FUROSEMIDE. [Concomitant]
     Active Substance: FUROSEMIDE

REACTIONS (5)
  - Periorbital swelling [Unknown]
  - Rash [Unknown]
  - Incorrect dose administered [Unknown]
  - Eye pruritus [Unknown]
  - Urticaria [Unknown]

NARRATIVE: CASE EVENT DATE: 20180318
